FAERS Safety Report 7542887-X (Version None)
Quarter: 2011Q2

REPORT INFORMATION
  Report Type: 
  Country: None (occurrence: None)
  Receive Date: 20110613
  Receipt Date: 20110530
  Transmission Date: 20111010
  Serious: Yes (Hospitalization)
  Sender: FDA-Public Use
  Company Number: PHHY2011DE26241

PATIENT
  Sex: Female

DRUGS (10)
  1. DIURETICS [Concomitant]
  2. RASILEZ [Suspect]
     Indication: HYPERTENSION
     Dosage: 1 DF, QD
     Dates: start: 20100701, end: 20100720
  3. DIOVAN [Suspect]
     Indication: HYPERTENSION
     Dosage: 1 DF, QD
     Dates: start: 20091124, end: 20100101
  4. PRAVASTATIN [Concomitant]
     Indication: INFARCTION
     Dosage: 1 DF, QD
     Dates: start: 20080701
  5. EUTHYROX [Concomitant]
     Dosage: 75 MG, UNK
  6. TORSEMIDE [Suspect]
     Indication: CARDIAC FAILURE
     Dosage: 2 DF, QD
     Dates: start: 20100709
  7. ASPIRIN [Concomitant]
     Indication: INFARCTION
     Dosage: 1 DF, QD
     Dates: start: 20080701
  8. METOPROLOL SUCCINATE [Concomitant]
     Indication: INFARCTION
     Dosage: 2 DF, QD
     Dates: start: 20080701
  9. AT1-BLOCKER [Concomitant]
  10. AMLODIPINE [Concomitant]
     Indication: INFARCTION
     Dosage: 1 DF, QD
     Dates: start: 20080701

REACTIONS (2)
  - HYPERKALAEMIA [None]
  - RENAL FAILURE ACUTE [None]
